FAERS Safety Report 8707852 (Version 3)
Quarter: 2012Q4

REPORT INFORMATION
  Report Type: 
  Country: US (occurrence: US)
  Receive Date: 20120806
  Receipt Date: 20120917
  Transmission Date: 20130627
  Serious: No
  Sender: FDA-Public Use
  Company Number: US-PFIZER INC-2012184059

PATIENT
  Age: 58 Year
  Sex: Female
  Weight: 68.03 kg

DRUGS (2)
  1. ZITHROMAX [Suspect]
     Indication: UPPER RESPIRATORY TRACT INFECTION
     Dosage: 250 mg, UNK
     Dates: start: 201104, end: 201104
  2. ZITHROMAX [Suspect]
     Indication: INFLUENZA

REACTIONS (5)
  - Fungal infection [Not Recovered/Not Resolved]
  - Oral candidiasis [Unknown]
  - Rash [Not Recovered/Not Resolved]
  - Flushing [Not Recovered/Not Resolved]
  - Malaise [Not Recovered/Not Resolved]
